FAERS Safety Report 18393854 (Version 2)
Quarter: 2020Q4

REPORT INFORMATION
  Report Type: Report from Study
  Country: AR (occurrence: AR)
  Receive Date: 20201016
  Receipt Date: 20201028
  Transmission Date: 20210114
  Serious: Yes (Other)
  Sender: FDA-Public Use
  Company Number: AR-SA-2020SA288960

PATIENT

DRUGS (3)
  1. AGALSIDASE BETA [Suspect]
     Active Substance: AGALSIDASE BETA
     Dosage: 1.042 UNK
     Route: 041
     Dates: start: 20201010
  2. DIPHENHYDRAMINE. [Concomitant]
     Active Substance: DIPHENHYDRAMINE
     Indication: PREMEDICATION
     Dosage: 10 MG DILUTED IN 50 CC OF PHYSIOLOGICAL SOLUTION TO BE ADMINISTERED IN 30 MINUTES
  3. AGALSIDASE BETA [Suspect]
     Active Substance: AGALSIDASE BETA
     Indication: FABRY^S DISEASE
     Dosage: 1.042 MG/KG, QOW
     Route: 041
     Dates: start: 20190821, end: 20201008

REACTIONS (8)
  - Blood pressure decreased [Recovered/Resolved]
  - Nausea [Recovered/Resolved]
  - Discomfort [Recovered/Resolved]
  - Syncope [Recovered/Resolved]
  - Loss of consciousness [Recovered/Resolved]
  - Fear of injection [Unknown]
  - Heart rate decreased [Recovered/Resolved]
  - Malaise [Recovered/Resolved]

NARRATIVE: CASE EVENT DATE: 20201008
